FAERS Safety Report 7725393-9 (Version None)
Quarter: 2011Q3

REPORT INFORMATION
  Report Type: 
  Country: None (occurrence: None)
  Receive Date: 20110902
  Receipt Date: 20110830
  Transmission Date: 20111222
  Serious: No
  Sender: FDA-Public Use
  Company Number: US-PFIZER INC-2011203135

PATIENT
  Sex: Female
  Weight: 68.027 kg

DRUGS (3)
  1. BONIVA [Concomitant]
     Dosage: UNK
  2. CELEBREX [Suspect]
     Dosage: UNK
  3. PREMARIN [Concomitant]
     Dosage: UNK

REACTIONS (1)
  - HYPERSENSITIVITY [None]
